FAERS Safety Report 10231372 (Version 1)
Quarter: 2014Q2

REPORT INFORMATION
  Report Type: Spontaneous
  Country: US (occurrence: None)
  Receive Date: 20140506
  Receipt Date: 20140506
  Transmission Date: 20141212
  Serious: Yes (Other)
  Sender: FDA-Public Use
  Company Number: 1310071

PATIENT
  Age: 75 Year
  Sex: Male

DRUGS (3)
  1. BEVACIZUMAB (BEVACIZUMAB) [Suspect]
     Indication: COLON CANCER METASTATIC
     Dosage: UNKNOWN
  2. CAPECITABINE (CAPECITABINE) (CAPECITABINE) [Concomitant]
  3. OXALIPLATIN (OXALIPLATIN) [Concomitant]

REACTIONS (2)
  - Large intestine perforation [None]
  - Abscess [None]
